FAERS Safety Report 4695252-7 (Version None)
Quarter: 2005Q2

REPORT INFORMATION
  Report Type: 
  Country: None (occurrence: None)
  Receive Date: 20050613
  Receipt Date: 20050329
  Transmission Date: 20051028
  Serious: No
  Sender: FDA-Public Use
  Company Number: 2005-00636

PATIENT
  Age: 72 Year
  Sex: Male
  Weight: 69.6 kg

DRUGS (8)
  1. VELCADE [Suspect]
     Indication: MANTLE CELL LYMPHOMA
     Dosage: 2.30 MG, 2/WEEK, IV BOLUS
     Route: 040
     Dates: start: 20050222
  2. GLUCOPHAGE [Concomitant]
  3. GLIPIZIDE [Concomitant]
  4. ANZEMET (DOLASETRON MESILATE) [Concomitant]
  5. IBUPROFEN [Concomitant]
  6. MULTIVITAMIN (VITAMIN NOS) [Concomitant]
  7. VITAMIN C (ASCORBIC ACID) [Concomitant]
  8. ALLOPURINOL [Concomitant]

REACTIONS (3)
  - BLOOD GLUCOSE DECREASED [None]
  - DIZZINESS [None]
  - HYPERHIDROSIS [None]
